FAERS Safety Report 13395637 (Version 1)
Quarter: 2017Q2

REPORT INFORMATION
  Report Type: Spontaneous
  Country: US (occurrence: US)
  Receive Date: 20170403
  Receipt Date: 20170403
  Transmission Date: 20170830
  Serious: Yes (Other)
  Sender: FDA-Public Use
  Company Number: US-PROCTER+GAMBLE-GS17033973

PATIENT
  Age: 90 Year
  Sex: Female

DRUGS (1)
  1. METAMUCIL [Suspect]
     Active Substance: PLANTAGO SEED
     Dosage: 2 WAFER, DAILY
     Route: 048

REACTIONS (3)
  - Tooth fracture [Not Recovered/Not Resolved]
  - Product physical issue [Unknown]
  - Product taste abnormal [None]
